FAERS Safety Report 6467141-9 (Version None)
Quarter: 2009Q4

REPORT INFORMATION
  Report Type: 
  Country: None (occurrence: None)
  Receive Date: 20091202
  Receipt Date: 20091120
  Transmission Date: 20100525
  Serious: Yes (Hospitalization)
  Sender: FDA-Public Use
  Company Number: US-PFIZER INC-2009287369

PATIENT
  Age: 52 Year
  Sex: Female
  Weight: 103.4 kg

DRUGS (4)
  1. BLINDED *NO SUBJECT DRUG [Suspect]
     Indication: RENAL CELL CARCINOMA
     Dosage: CYCLIC
     Route: 048
     Dates: start: 20081210, end: 20090921
  2. BLINDED *PLACEBO [Suspect]
     Indication: RENAL CELL CARCINOMA
     Dosage: CYCLIC
     Route: 048
     Dates: start: 20081210, end: 20090921
  3. BLINDED *SORAFENIB [Suspect]
     Indication: RENAL CELL CARCINOMA
     Dosage: CYCLIC
     Route: 048
     Dates: start: 20081210, end: 20090921
  4. BLINDED SUNITINIB MALATE [Suspect]
     Indication: RENAL CELL CARCINOMA
     Dosage: CYCLIC
     Route: 048
     Dates: start: 20081210, end: 20090921

REACTIONS (1)
  - HISTOPLASMOSIS [None]
